FAERS Safety Report 22124779 (Version 1)
Quarter: 2023Q1

REPORT INFORMATION
  Report Type: Spontaneous
  Country: CN (occurrence: None)
  Receive Date: 20230322
  Receipt Date: 20230322
  Transmission Date: 20230417
  Serious: Yes (Other)
  Sender: FDA-Public Use
  Company Number: CN-Orion Corporation ORION PHARMA-ENTC2023-0003

PATIENT
  Age: 79 Year
  Sex: Female
  Weight: 50 kg

DRUGS (1)
  1. CARBIDOPA\ENTACAPONE\LEVODOPA [Suspect]
     Active Substance: CARBIDOPA\ENTACAPONE\LEVODOPA
     Indication: Parkinson^s disease
     Route: 048
     Dates: start: 20221123, end: 20221204

REACTIONS (4)
  - Vertebrobasilar insufficiency [Unknown]
  - Hallucination [Unknown]
  - Disorganised speech [Unknown]
  - Disorientation [Unknown]

NARRATIVE: CASE EVENT DATE: 20221204
